FAERS Safety Report 9870800 (Version 5)
Quarter: 2014Q3

REPORT INFORMATION
  Report Type: Spontaneous
  Country: US (occurrence: US)
  Receive Date: 20140205
  Receipt Date: 20140930
  Transmission Date: 20150326
  Serious: Yes (Life-Threatening, Hospitalization, Other)
  Sender: FDA-Public Use
  Company Number: US-BAYER-2014-016612

PATIENT
  Age: 30 Year
  Sex: Female
  Weight: 79 kg

DRUGS (3)
  1. PRENATAL VITAMINS [Concomitant]
     Active Substance: VITAMINS
     Route: 048
  2. ALBUTEROL. [Concomitant]
     Active Substance: ALBUTEROL
     Indication: ASTHMA
     Dosage: INHALATION
     Dates: start: 2000
  3. MIRENA [Suspect]
     Active Substance: LEVONORGESTREL
     Indication: CONTRACEPTION
     Dosage: 20 MCG/24HR, CONT
     Route: 015
     Dates: start: 20090901, end: 20110406

REACTIONS (14)
  - Uterine perforation [None]
  - Infection [None]
  - Pregnancy with contraceptive device [None]
  - Drug ineffective [None]
  - Anhedonia [None]
  - Gastric perforation [None]
  - Wound haemorrhage [None]
  - Abdominal pain [None]
  - Anxiety [None]
  - Scar [None]
  - Emotional distress [None]
  - Injury [None]
  - General physical health deterioration [None]
  - Device issue [None]

NARRATIVE: CASE EVENT DATE: 2009
